FAERS Safety Report 7995355-5 (Version None)
Quarter: 2011Q4

REPORT INFORMATION
  Report Type: 
  Country: None (occurrence: None)
  Receive Date: 20111220
  Receipt Date: 20111214
  Transmission Date: 20120403
  Serious: Yes (Other)
  Sender: FDA-Public Use
  Company Number: US-ROCHE-793147

PATIENT
  Sex: Female
  Weight: 54.48 kg

DRUGS (3)
  1. ACCUTANE [Suspect]
     Indication: CYST
  2. ACCUTANE [Suspect]
     Indication: ACNE
     Route: 065
     Dates: start: 19950101, end: 20001231
  3. ACCUTANE [Suspect]
     Indication: SEBORRHOEA
     Route: 065
     Dates: start: 20020101, end: 20040101

REACTIONS (8)
  - MENTAL DISORDER [None]
  - SUICIDAL IDEATION [None]
  - INFLAMMATORY BOWEL DISEASE [None]
  - IRRITABLE BOWEL SYNDROME [None]
  - GASTROINTESTINAL DISORDER [None]
  - DEPRESSION [None]
  - CROHN'S DISEASE [None]
  - COLON INJURY [None]
